APPROVED DRUG PRODUCT: METHYLPREDNISOLONE ACETATE
Active Ingredient: METHYLPREDNISOLONE ACETATE
Strength: 80MG/ML
Dosage Form/Route: INJECTABLE;INJECTION
Application: A211930 | Product #002 | TE Code: AB
Applicant: EUGIA PHARMA SPECIALITIES LTD
Approved: Apr 13, 2023 | RLD: No | RS: No | Type: RX